FAERS Safety Report 5799607-9 (Version None)
Quarter: 2008Q3

REPORT INFORMATION
  Report Type: 
  Country: None (occurrence: None)
  Receive Date: 20080703
  Receipt Date: 20080625
  Transmission Date: 20090109
  Serious: Yes (Other)
  Sender: FDA-Public Use
  Company Number: PHHY2008JP08409

PATIENT
  Age: 75 Year
  Sex: Female

DRUGS (1)
  1. RITALIN [Suspect]
     Indication: DEPRESSION
     Dosage: 10 MG/DAY
     Route: 048

REACTIONS (4)
  - DEMENTIA [None]
  - DEPRESSIVE SYMPTOM [None]
  - MEMORY IMPAIRMENT [None]
  - WITHDRAWAL SYNDROME [None]
